FAERS Safety Report 12967529 (Version 2)
Quarter: 2016Q4

REPORT INFORMATION
  Report Type: Report from Study
  Country: US (occurrence: US)
  Receive Date: 20161123
  Receipt Date: 20161129
  Transmission Date: 20170207
  Serious: Yes (Hospitalization)
  Sender: FDA-Public Use
  Company Number: US-ROCHE-1856057

PATIENT
  Age: 75 Year
  Sex: Male
  Weight: 60.6 kg

DRUGS (7)
  1. LEVAQUIN [Concomitant]
     Active Substance: LEVOFLOXACIN
  2. BACTRIM [Concomitant]
     Active Substance: SULFAMETHOXAZOLE\TRIMETHOPRIM
     Route: 065
  3. PENTOSTATIN. [Suspect]
     Active Substance: PENTOSTATIN
     Route: 042
  4. RITUXIMAB [Suspect]
     Active Substance: RITUXIMAB
     Route: 042
  5. RITUXIMAB [Suspect]
     Active Substance: RITUXIMAB
     Indication: HAIRY CELL LEUKAEMIA
     Dosage: ONE TIME DOSE 10 MG/ML. CYCLE 6 DAY 15 TREATMENT
     Route: 042
     Dates: start: 20141024
  6. AMOXICILLIN. [Concomitant]
     Active Substance: AMOXICILLIN
  7. PENTOSTATIN. [Suspect]
     Active Substance: PENTOSTATIN
     Indication: HAIRY CELL LEUKAEMIA
     Dosage: ONE TIME DOSE. CYCLE 6 DAY 15 TREATMENT
     Route: 042
     Dates: start: 20141024

REACTIONS (3)
  - Wheezing [Recovered/Resolved]
  - Lung infection [Recovered/Resolved]
  - Dyspnoea [Recovered/Resolved]

NARRATIVE: CASE EVENT DATE: 20161101
